FAERS Safety Report 22389801 (Version 1)
Quarter: 2023Q2

REPORT INFORMATION
  Report Type: Spontaneous
  Country: CA (occurrence: CA)
  Receive Date: 20230531
  Receipt Date: 20230531
  Transmission Date: 20230722
  Serious: Yes (Other)
  Sender: FDA-Public Use
  Company Number: CA-PFIZER INC-202200500448

PATIENT
  Age: 76 Year
  Sex: Female
  Weight: 71 kg

DRUGS (3)
  1. ABRILADA [Suspect]
     Active Substance: ADALIMUMAB-AFZB
     Indication: Crohn^s disease
     Dosage: 40 MG, WEEKLY
     Route: 058
     Dates: start: 20220503
  2. ABRILADA [Suspect]
     Active Substance: ADALIMUMAB-AFZB
     Dosage: 40 MG, WEEKLY
     Route: 058
     Dates: start: 20220912
  3. SANDOSTATIN [Concomitant]
     Active Substance: OCTREOTIDE ACETATE
     Dosage: 1 DF

REACTIONS (5)
  - Gastric stenosis [Not Recovered/Not Resolved]
  - Off label use [Unknown]
  - Renal disorder [Not Recovered/Not Resolved]
  - Product dose omission issue [Unknown]
  - Product supply issue [Unknown]

NARRATIVE: CASE EVENT DATE: 20220101
